FAERS Safety Report 9401929 (Version 4)
Quarter: 2014Q1

REPORT INFORMATION
  Report Type: Spontaneous
  Country: US (occurrence: US)
  Receive Date: 20130716
  Receipt Date: 20140124
  Transmission Date: 20141002
  Serious: Yes (Other)
  Sender: FDA-Public Use
  Company Number: US-PFIZER INC-2013205282

PATIENT
  Age: 61 Year
  Sex: Female

DRUGS (8)
  1. XELJANZ [Suspect]
     Indication: RHEUMATOID ARTHRITIS
     Dosage: 5 MG 1 TABLETS, 2X/DAY
     Route: 048
     Dates: start: 201303
  2. XELJANZ [Suspect]
     Dosage: 5 MG, 2X/DAY
     Route: 048
     Dates: start: 20130502, end: 2013
  3. XELJANZ [Suspect]
     Dosage: 5 MG, 2X/DAY
     Route: 048
     Dates: start: 2013, end: 201312
  4. LIPITOR [Concomitant]
     Dosage: 10 MG
  5. TRAMADOL HYDROCHLORIDE [Concomitant]
     Dosage: 50 MG
  6. LEVOTHYROXINE [Concomitant]
     Dosage: 100 MCG
  7. METHOTREXATE [Concomitant]
     Dosage: 2.5 MG
  8. PREDNISONE [Concomitant]
     Dosage: 5 MG

REACTIONS (8)
  - Drug dose omission [Unknown]
  - Rheumatoid arthritis [Recovering/Resolving]
  - Pain in extremity [Recovering/Resolving]
  - Musculoskeletal pain [Recovering/Resolving]
  - Local swelling [Recovering/Resolving]
  - Joint swelling [Recovering/Resolving]
  - Upper respiratory tract infection [Recovered/Resolved]
  - Arthritis [Recovering/Resolving]
